FAERS Safety Report 9478470 (Version 1)
Quarter: 2013Q3

REPORT INFORMATION
  Report Type: Spontaneous
  Country: US (occurrence: US)
  Receive Date: 20130827
  Receipt Date: 20130827
  Transmission Date: 20140515
  Serious: Yes (Other)
  Sender: FDA-Public Use
  Company Number: US-ASTELLAS-2013US008963

PATIENT
  Age: 34 Year
  Sex: Male

DRUGS (2)
  1. PROGRAF [Suspect]
     Indication: IMMUNOSUPPRESSION
     Dosage: 3 MG IN MORNING + 2.5 MG IN EVENING
     Route: 065
  2. PREDNISONE [Concomitant]
     Indication: IMMUNOSUPPRESSION
     Dosage: 5 MG, UID/QD
     Route: 065

REACTIONS (2)
  - Off label use [Unknown]
  - Musculoskeletal pain [Recovered/Resolved]
